FAERS Safety Report 25601180 (Version 1)
Quarter: 2025Q3

REPORT INFORMATION
  Report Type: Spontaneous
  Country: US (occurrence: US)
  Receive Date: 20250724
  Receipt Date: 20250724
  Transmission Date: 20251021
  Serious: Yes (Other)
  Sender: RANBAXY
  Company Number: US-SUN PHARMACEUTICAL INDUSTRIES INC-2025R1-518386

PATIENT
  Age: 11 Year
  Sex: Male

DRUGS (4)
  1. GABAPENTIN [Suspect]
     Active Substance: GABAPENTIN
     Indication: Restless legs syndrome
     Dosage: 100 MILLIGRAM, DAILY (AT NIGHT)
     Route: 065
  2. GABAPENTIN [Suspect]
     Active Substance: GABAPENTIN
     Route: 065
  3. GUANFACINE [Interacting]
     Active Substance: GUANFACINE
     Indication: Restless legs syndrome
     Route: 065
  4. PRAMIPEXOLE [Interacting]
     Active Substance: PRAMIPEXOLE
     Indication: Restless legs syndrome
     Route: 065

REACTIONS (3)
  - Disease progression [Unknown]
  - Irritability [Unknown]
  - Behaviour disorder [Unknown]
